FAERS Safety Report 4433819-1 (Version None)
Quarter: 2004Q3

REPORT INFORMATION
  Report Type: 
  Country: None (occurrence: None)
  Receive Date: 20040826
  Receipt Date: 20040820
  Transmission Date: 20050211
  Serious: Yes (Death, Life-Threatening, Hospitalization)
  Sender: FDA-Public Use
  Company Number: FR-ROCHE-378097

PATIENT
  Age: 49 Year
  Sex: Male

DRUGS (7)
  1. NICARDIPINE HCL [Suspect]
     Indication: DRUG USE FOR UNKNOWN INDICATION
     Route: 048
     Dates: end: 20040705
  2. CYMEVAN [Suspect]
     Indication: CYTOMEGALOVIRUS INFECTION
     Route: 065
     Dates: start: 20040315, end: 20040415
  3. CYMEVAN [Suspect]
     Route: 065
     Dates: start: 20040604, end: 20040626
  4. BACTRIM [Suspect]
     Indication: DRUG USE FOR UNKNOWN INDICATION
     Route: 048
     Dates: start: 20031206, end: 20040630
  5. FENOFIBRATE [Suspect]
     Route: 048
     Dates: end: 20040705
  6. PROGRAF [Suspect]
     Route: 065
  7. ESOMEPRAZOLE [Suspect]
     Route: 048
     Dates: end: 20040705

REACTIONS (8)
  - ANAEMIA [None]
  - CYTOMEGALOVIRUS INFECTION [None]
  - HAEMOGLOBIN DECREASED [None]
  - LEUKOPENIA [None]
  - NEUTROPHIL COUNT DECREASED [None]
  - SEPTIC SHOCK [None]
  - THROMBOCYTOPENIA [None]
  - TOXIC EPIDERMAL NECROLYSIS [None]
